FAERS Safety Report 19798796 (Version 2)
Quarter: 2022Q4

REPORT INFORMATION
  Report Type: Spontaneous
  Country: IT (occurrence: None)
  Receive Date: 20210907
  Receipt Date: 20221007
  Transmission Date: 20230112
  Serious: Yes (Other)
  Sender: FDA-Public Use
  Company Number: None

PATIENT
  Age: 69 Year
  Sex: Female

DRUGS (14)
  1. ENOXAPARIN [Suspect]
     Active Substance: ENOXAPARIN
     Indication: COVID-19
     Dosage: ()
     Dates: start: 2020
  2. LOPINAVIR\RITONAVIR [Suspect]
     Active Substance: LOPINAVIR\RITONAVIR
     Indication: COVID-19 pneumonia
     Route: 048
  3. OMEPRAZOLE [Suspect]
     Active Substance: OMEPRAZOLE
     Indication: COVID-19
     Dates: start: 2020
  4. FUROSEMIDE [Suspect]
     Active Substance: FUROSEMIDE
     Indication: COVID-19
     Dates: start: 2020
  5. SPIRONOLACTONE [Suspect]
     Active Substance: SPIRONOLACTONE
     Indication: COVID-19
     Dates: start: 2020
  6. SARILUMAB [Suspect]
     Active Substance: SARILUMAB
     Indication: COVID-19 pneumonia
     Dosage: ()
     Route: 065
     Dates: start: 2020, end: 2020
  7. PIPERACILLIN SODIUM\TAZOBACTAM SODIUM [Suspect]
     Active Substance: PIPERACILLIN SODIUM\TAZOBACTAM SODIUM
     Indication: COVID-19
     Route: 065
     Dates: start: 2020, end: 2020
  8. HYDROXYZINE [Suspect]
     Active Substance: HYDROXYZINE HYDROCHLORIDE
     Indication: COVID-19
     Dates: start: 2020
  9. HYDROXYCHLOROQUINE [Suspect]
     Active Substance: HYDROXYCHLOROQUINE
     Indication: COVID-19 pneumonia
     Dosage: ()
     Route: 065
     Dates: start: 2020, end: 2020
  10. LEVOFLOXACIN [Suspect]
     Active Substance: LEVOFLOXACIN
     Indication: COVID-19
     Dosage: ()
     Dates: start: 2020
  11. IOPROMIDE [Suspect]
     Active Substance: IOPROMIDE
     Indication: COVID-19 pneumonia
     Route: 065
     Dates: start: 2020, end: 2020
  12. PREDNISONE [Suspect]
     Active Substance: PREDNISONE
     Indication: COVID-19
     Dates: start: 2020
  13. OXYGEN [Concomitant]
     Active Substance: OXYGEN
  14. IOPAMIDOL [Suspect]
     Active Substance: IOPAMIDOL
     Indication: COVID-19

REACTIONS (2)
  - Drug reaction with eosinophilia and systemic symptoms [Recovered/Resolved]
  - Off label use [Unknown]

NARRATIVE: CASE EVENT DATE: 20200101
